FAERS Safety Report 22215145 (Version 2)
Quarter: 2023Q2

REPORT INFORMATION
  Report Type: Spontaneous
  Country: US (occurrence: US)
  Receive Date: 20230415
  Receipt Date: 20230510
  Transmission Date: 20230722
  Serious: Yes (Hospitalization, Disabling, Other)
  Sender: FDA-Public Use
  Company Number: US-TORRENT-00012606

PATIENT
  Sex: Female

DRUGS (1)
  1. MINOCYCLINE [Suspect]
     Active Substance: MINOCYCLINE HYDROCHLORIDE
     Indication: Confluent and reticulate papillomatosis
     Dosage: UNKNOWN
     Route: 065

REACTIONS (7)
  - Optic atrophy [Unknown]
  - Intracranial pressure increased [Unknown]
  - Papilloedema [Not Recovered/Not Resolved]
  - Blindness [Unknown]
  - Cranial nerve paralysis [Unknown]
  - Idiopathic intracranial hypertension [Not Recovered/Not Resolved]
  - Optic neuritis [Unknown]
